FAERS Safety Report 14340032 (Version 1)
Quarter: 2017Q4

REPORT INFORMATION
  Report Type: Report from Study
  Country: US (occurrence: US)
  Receive Date: 20171231
  Receipt Date: 20171231
  Transmission Date: 20180321
  Serious: Yes (Hospitalization, Other)
  Sender: FDA-Public Use
  Company Number: US-TEVA-2017-US-838450

PATIENT
  Sex: Female

DRUGS (1)
  1. COPAXONE [Suspect]
     Active Substance: GLATIRAMER ACETATE
     Indication: MULTIPLE SCLEROSIS
     Dosage: 20 MILLIGRAM/MILLILITER
     Route: 058
     Dates: start: 20101115

REACTIONS (4)
  - Body temperature increased [Unknown]
  - Sepsis [Unknown]
  - Peripheral swelling [Unknown]
  - Oropharyngeal pain [Unknown]
